FAERS Safety Report 7322554-8 (Version None)
Quarter: 2011Q1

REPORT INFORMATION
  Report Type: 
  Country: None (occurrence: None)
  Receive Date: 20110301
  Receipt Date: 20110215
  Transmission Date: 20110831
  Serious: Yes (Life-Threatening, Hospitalization)
  Sender: FDA-Public Use
  Company Number: GB-RANBAXY-2011R1-41670

PATIENT
  Age: 65 Year
  Sex: Male

DRUGS (9)
  1. SIMVASTATIN [Suspect]
     Indication: HYPERCHOLESTEROLAEMIA
     Dosage: 40 MG, QD
     Route: 048
     Dates: start: 20010101, end: 20080512
  2. FUSIDIC ACID [Suspect]
     Indication: SEPTIC ARTHRITIS STAPHYLOCOCCAL
     Dosage: UNK
     Route: 048
  3. AMLODIPINE [Concomitant]
     Indication: HYPERTENSION
     Dosage: 5 MG, QD
     Route: 065
  4. FLOXACILLIN SODIUM [Concomitant]
     Indication: ARTHRITIS BACTERIAL
     Dosage: 500 MG, QID
     Route: 048
     Dates: start: 20080331
  5. SIMVASTATIN [Suspect]
     Indication: MYOCARDIAL ISCHAEMIA
  6. ATENOLOL [Concomitant]
     Indication: MYOCARDIAL ISCHAEMIA
     Dosage: 100 MG, QD
     Route: 065
  7. RAMIPRIL [Concomitant]
     Indication: MYOCARDIAL ISCHAEMIA
     Dosage: 10 MG, QD
     Route: 048
  8. BENDROFLUAZIDE [Concomitant]
     Indication: HYPERTENSION
     Dosage: 2.5 MG, QD
     Route: 048
  9. DOXAZOSIN [Concomitant]
     Indication: HYPERTENSION
     Dosage: 4 MG, QD
     Route: 048

REACTIONS (8)
  - HYPOXIA [None]
  - RHABDOMYOLYSIS [None]
  - DRUG INTERACTION [None]
  - HYPOTENSION [None]
  - BLOOD CREATINE PHOSPHOKINASE INCREASED [None]
  - RENAL FAILURE ACUTE [None]
  - ASTHENIA [None]
  - MYALGIA [None]
